FAERS Safety Report 4667856-9 (Version None)
Quarter: 2005Q2

REPORT INFORMATION
  Report Type: 
  Country: None (occurrence: None)
  Receive Date: 20050520
  Receipt Date: 20050520
  Transmission Date: 20051028
  Serious: Yes (Other)
  Sender: FDA-Public Use
  Company Number: None

PATIENT
  Sex: Male

DRUGS (2)
  1. CLOFARABINE [Suspect]
     Indication: ACUTE MYELOID LEUKAEMIA
     Dosage: 57 MG, IV DAILY
     Route: 042
     Dates: start: 20050429, end: 20050503
  2. CYTARABINE [Suspect]
     Indication: ACUTE MYELOID LEUKAEMIA
     Dosage: 3840 MG IV DAILY X 5
     Route: 042
     Dates: start: 20050429, end: 20050503

REACTIONS (7)
  - DELIRIUM [None]
  - ERYTHEMA [None]
  - GENERAL PHYSICAL HEALTH DETERIORATION [None]
  - HYPOTENSION [None]
  - OEDEMA PERIPHERAL [None]
  - PAIN [None]
  - RENAL DISORDER [None]
